FAERS Safety Report 20642619 (Version 1)
Quarter: 2022Q1

REPORT INFORMATION
  Report Type: Spontaneous
  Country: DE (occurrence: DE)
  Receive Date: 20220328
  Receipt Date: 20220328
  Transmission Date: 20220423
  Serious: Yes (Other)
  Sender: FDA-Public Use
  Company Number: DE-EMBRYOTOX-202101284

PATIENT
  Age: 1 Day
  Sex: Male
  Weight: 2.94 kg

DRUGS (3)
  1. ESCITALOPRAM [Suspect]
     Active Substance: ESCITALOPRAM OXALATE
     Indication: Depression
     Dosage: 10 [MG/D ]
     Route: 064
     Dates: start: 20201223, end: 20211008
  2. TRAZODONE [Concomitant]
     Active Substance: TRAZODONE HYDROCHLORIDE
     Indication: Depression
     Dosage: 25 [MG/D ]
     Route: 064
     Dates: start: 20201223, end: 20210202
  3. PERTUSSIS VAC [Concomitant]
     Indication: Immunisation
     Dosage: UNK
     Route: 064

REACTIONS (3)
  - Small for dates baby [Recovered/Resolved]
  - Respiratory disorder neonatal [Recovered/Resolved]
  - Foetal exposure during pregnancy [Unknown]

NARRATIVE: CASE EVENT DATE: 20211001
